FAERS Safety Report 9901316 (Version 2)
Quarter: 2015Q1

REPORT INFORMATION
  Report Type: Spontaneous
  Country: US (occurrence: US)
  Receive Date: 20140217
  Receipt Date: 20150303
  Transmission Date: 20150721
  Serious: Yes (Hospitalization)
  Sender: FDA-Public Use
  Company Number: US-BAYER-2014-024536

PATIENT
  Age: 21 Year
  Sex: Female
  Weight: 83.45 kg

DRUGS (2)
  1. FLAGYL [Concomitant]
     Active Substance: METRONIDAZOLE\METRONIDAZOLE HYDROCHLORIDE
  2. MIRENA [Suspect]
     Active Substance: LEVONORGESTREL
     Indication: CONTRACEPTION
     Dosage: 20 MCG/24HR, CONT
     Route: 015
     Dates: start: 20120228, end: 20130619

REACTIONS (8)
  - Injury [None]
  - Procedural pain [None]
  - Scar [None]
  - Off label use [None]
  - Uterine perforation [None]
  - Medical device discomfort [None]
  - Pain [None]
  - Medical device pain [None]

NARRATIVE: CASE EVENT DATE: 20130619
